FAERS Safety Report 8607549-6 (Version None)
Quarter: 2012Q3

REPORT INFORMATION
  Report Type: 
  Country: None (occurrence: None)
  Receive Date: 20120821
  Receipt Date: 20120809
  Transmission Date: 20120928
  Serious: Yes (Other)
  Sender: FDA-Public Use
  Company Number: US-BAYER-2012-082423

PATIENT
  Age: 45 Year
  Sex: Female

DRUGS (7)
  1. YASMIN [Suspect]
  2. FEXOFENADINE HCL [Concomitant]
     Dosage: 180 MG, UNK
     Dates: start: 20100617, end: 20101026
  3. VASOTEC [Concomitant]
     Indication: HYPERTENSION
     Dosage: UNK
     Dates: start: 20100624
  4. AZITHROMYCIN [Concomitant]
     Dosage: 250 MG, UNK
     Dates: start: 20100617
  5. DROSPIRENONE AND ETHINYL ESTRADIOL [Suspect]
  6. FLUCONAZOLE [Concomitant]
     Dosage: 150 MG, UNK
  7. METHYLPREDNISOLONE [Concomitant]
     Dosage: 4 MG, UNK
     Dates: start: 20100617

REACTIONS (1)
  - RETINAL VEIN OCCLUSION [None]
